FAERS Safety Report 15939133 (Version 6)
Quarter: 2022Q2

REPORT INFORMATION
  Report Type: Spontaneous
  Country: US (occurrence: US)
  Receive Date: 20190208
  Receipt Date: 20220513
  Transmission Date: 20220721
  Serious: Yes (Hospitalization, Other)
  Sender: FDA-Public Use
  Company Number: US-PFIZER INC-2019050971

PATIENT
  Age: 58 Year
  Sex: Male
  Weight: 131.54 kg

DRUGS (3)
  1. XELJANZ XR [Suspect]
     Active Substance: TOFACITINIB CITRATE
     Indication: Arthritis
     Dosage: 11 MG
  2. XELJANZ XR [Suspect]
     Active Substance: TOFACITINIB CITRATE
     Dosage: 11 MG
     Dates: start: 2021, end: 2021
  3. HYDROCHLOROTHIAZIDE [Concomitant]
     Active Substance: HYDROCHLOROTHIAZIDE
     Indication: Blood pressure management
     Dosage: 25 MG

REACTIONS (16)
  - Rheumatoid arthritis [Unknown]
  - Migraine [Unknown]
  - Gastric disorder [Unknown]
  - Neoplasm [Unknown]
  - Brain neoplasm [Unknown]
  - Nerve injury [Unknown]
  - Seizure [Recovered/Resolved]
  - Back pain [Unknown]
  - Arthralgia [Unknown]
  - Disorientation [Unknown]
  - Dyspnoea [Unknown]
  - Pain [Unknown]
  - Memory impairment [Unknown]
  - Chronic obstructive pulmonary disease [Unknown]
  - Headache [Unknown]
  - Confusional state [Unknown]

NARRATIVE: CASE EVENT DATE: 20220101
